FAERS Safety Report 5968247-0 (Version None)
Quarter: 2008Q4

REPORT INFORMATION
  Report Type: 
  Country: None (occurrence: None)
  Receive Date: 20081126
  Receipt Date: 20081118
  Transmission Date: 20090506
  Serious: Yes (Hospitalization)
  Sender: FDA-Public Use
  Company Number: AU-BAXTER-2008BH012613

PATIENT
  Age: 60 Year
  Sex: Female

DRUGS (4)
  1. CYCLOPHOSPHAMIDE [Suspect]
     Indication: IMMUNOSUPPRESSION
     Dates: start: 20050101, end: 20070101
  2. CYCLOSPORINE [Suspect]
     Indication: IMMUNOSUPPRESSION
     Route: 065
     Dates: start: 20070101
  3. PREDNISOLONE [Suspect]
     Indication: IMMUNOSUPPRESSION
     Dates: start: 20070101
  4. PREDNISOLONE [Suspect]
     Dates: start: 20050101, end: 20070101

REACTIONS (2)
  - THROMBOCYTOPENIA [None]
  - ZYGOMYCOSIS [None]
